FAERS Safety Report 14187428 (Version 1)
Quarter: 2017Q4

REPORT INFORMATION
  Report Type: Spontaneous
  Country: BR (occurrence: BR)
  Receive Date: 20171114
  Receipt Date: 20171114
  Transmission Date: 20180321
  Serious: Yes (Other)
  Sender: FDA-Public Use
  Company Number: BR-ABBVIE-17P-020-2046885-00

PATIENT
  Age: 7 Year
  Sex: Female
  Weight: 34 kg

DRUGS (3)
  1. RISPERIDONE. [Suspect]
     Active Substance: RISPERIDONE
     Indication: AGITATION
     Dosage: IN THE MORNING, UPON WAKING
     Route: 048
     Dates: start: 201703
  2. DEPAKOTE ER [Suspect]
     Active Substance: DIVALPROEX SODIUM
     Indication: AGITATION
     Dosage: AT NIGHT, AT 08:30PM
     Route: 048
     Dates: start: 201703
  3. RITALINA [Concomitant]
     Active Substance: METHYLPHENIDATE HYDROCHLORIDE
     Indication: APPETITE DISORDER
     Dosage: AT 01:00PM
     Route: 048
     Dates: start: 201703

REACTIONS (3)
  - Off label use [Unknown]
  - Drug administered to patient of inappropriate age [Unknown]
  - Fluid retention [Recovered/Resolved]

NARRATIVE: CASE EVENT DATE: 201703
